FAERS Safety Report 13167992 (Version 1)
Quarter: 2017Q1

REPORT INFORMATION
  Report Type: Spontaneous
  Country: US (occurrence: US)
  Receive Date: 20170131
  Receipt Date: 20170131
  Transmission Date: 20170428
  Serious: No
  Sender: FDA-Public Use
  Company Number: US-SAGENTPRD-2016-US-000133

PATIENT
  Age: 83 Year
  Sex: Male

DRUGS (2)
  1. CLONAZEPAM. [Concomitant]
     Active Substance: CLONAZEPAM
  2. LEVETIRACETAM INJECTION [Suspect]
     Active Substance: LEVETIRACETAM
     Dosage: 250 MG BID

REACTIONS (2)
  - Somnolence [Recovered/Resolved]
  - Dizziness [Recovered/Resolved]
